FAERS Safety Report 9478867 (Version 2)
Quarter: 2013Q4

REPORT INFORMATION
  Report Type: Spontaneous
  Country: US (occurrence: US)
  Receive Date: 20130827
  Receipt Date: 20131202
  Transmission Date: 20140711
  Serious: Yes (Hospitalization, Other)
  Sender: FDA-Public Use
  Company Number: US-BAYER-2013-102877

PATIENT
  Age: 22 Year
  Sex: Female
  Weight: 117.91 kg

DRUGS (7)
  1. YAZ [Suspect]
     Indication: CONTRACEPTION
     Dosage: UNK
     Dates: start: 200808, end: 201004
  2. YAZ [Suspect]
     Indication: PREMENSTRUAL SYNDROME
  3. ALBUTEROL INHALER [Concomitant]
     Indication: ASTHMA
     Dosage: UNK
     Dates: start: 1990, end: 2013
  4. NORCO [Concomitant]
  5. VICODIN [Concomitant]
     Indication: PAIN
  6. DILAUDID [Concomitant]
     Indication: PAIN
     Route: 042
  7. TORADOL [Concomitant]

REACTIONS (5)
  - Pulmonary embolism [None]
  - Pleural effusion [None]
  - Injury [None]
  - Pain [None]
  - Pain [None]
